FAERS Safety Report 13868589 (Version 2)
Quarter: 2017Q3

REPORT INFORMATION
  Report Type: Spontaneous
  Country: JP (occurrence: JP)
  Receive Date: 20170815
  Receipt Date: 20170911
  Transmission Date: 20171127
  Serious: Yes (Hospitalization, Other)
  Sender: FDA-Public Use
  Company Number: JP-ROCHE-1979011

PATIENT
  Age: 24 Year
  Sex: Female
  Weight: 47 kg

DRUGS (3)
  1. ACTEMRA [Suspect]
     Active Substance: TOCILIZUMAB
     Indication: RHEUMATOID ARTHRITIS
     Route: 058
     Dates: start: 20170318, end: 20170619
  2. AZULFIDINE EN-TABS [Concomitant]
     Active Substance: SULFASALAZINE
     Dosage: DOSAGE IS UNCERTAIN.
     Route: 065
     Dates: start: 20161029, end: 20170204
  3. ACTEMRA [Suspect]
     Active Substance: TOCILIZUMAB
     Indication: RHEUMATOID ARTHRITIS
     Dosage: DOSAGE IS UNCERTAIN.
     Route: 058
     Dates: start: 20160917, end: 20170317

REACTIONS (2)
  - Gastrointestinal oedema [Recovered/Resolved]
  - Ileal ulcer [Unknown]

NARRATIVE: CASE EVENT DATE: 20170628
